FAERS Safety Report 6205675-2 (Version None)
Quarter: 2009Q2

REPORT INFORMATION
  Report Type: 
  Country: None (occurrence: None)
  Receive Date: 20090527
  Receipt Date: 20090414
  Transmission Date: 20091009
  Serious: No
  Sender: FDA-Public Use
  Company Number: US-ABBOTT-09P-163-0568480-00

PATIENT
  Sex: Female

DRUGS (11)
  1. SIMCOR [Suspect]
     Indication: BLOOD CHOLESTEROL INCREASED
     Dosage: 500/20 MG DAILY AT BEDTIME
     Dates: start: 20090409
  2. ESTRADIOL [Concomitant]
     Indication: DRUG USE FOR UNKNOWN INDICATION
  3. ASPIRIN [Concomitant]
     Indication: DRUG USE FOR UNKNOWN INDICATION
     Dates: start: 20081101
  4. SULFATHIOZIN [Concomitant]
     Indication: DRUG USE FOR UNKNOWN INDICATION
  5. PAMIN [Concomitant]
     Indication: IRRITABLE BOWEL SYNDROME
  6. HYDROCHLOROTHIAZIDE [Concomitant]
     Indication: DRUG USE FOR UNKNOWN INDICATION
  7. AZOR [Concomitant]
     Indication: DRUG USE FOR UNKNOWN INDICATION
  8. PRILOSEC [Concomitant]
     Indication: DRUG USE FOR UNKNOWN INDICATION
  9. FOLIC ACID [Concomitant]
     Indication: DRUG USE FOR UNKNOWN INDICATION
  10. XANAX [Concomitant]
     Indication: DRUG USE FOR UNKNOWN INDICATION
  11. HYDROCORTISONE [Concomitant]
     Indication: HAEMORRHOIDS

REACTIONS (2)
  - BURNING SENSATION [None]
  - FLUSHING [None]
